FAERS Safety Report 25217979 (Version 1)
Quarter: 2025Q2

REPORT INFORMATION
  Report Type: Report from Study
  Country: CA (occurrence: CA)
  Receive Date: 20250421
  Receipt Date: 20250421
  Transmission Date: 20250717
  Serious: Yes (Other)
  Sender: AMGEN
  Company Number: CA-BEH-2025202009

PATIENT
  Sex: Female

DRUGS (1)
  1. AVACOPAN [Suspect]
     Active Substance: AVACOPAN
     Indication: Product used for unknown indication
     Dosage: 30 MG, BID
     Route: 048

REACTIONS (3)
  - Delirium [Recovering/Resolving]
  - Arthritis [Recovering/Resolving]
  - Hyperammonaemia [Recovering/Resolving]
